FAERS Safety Report 8330297-7 (Version None)
Quarter: 2012Q2

REPORT INFORMATION
  Report Type: 
  Country: None (occurrence: None)
  Receive Date: 20120430
  Receipt Date: 20120416
  Transmission Date: 20120825
  Serious: Yes (Other)
  Sender: FDA-Public Use
  Company Number: DSA_56274_2012

PATIENT
  Age: 71 Year
  Sex: Female

DRUGS (4)
  1. FLUOROMETHOLONE [Suspect]
     Indication: PRODUCT USED FOR UNKNOWN INDICATION
     Dosage: (DF OPHTHALMIC)
     Route: 047
  2. VALACYCLOVIR HYDROCHLORIDE [Concomitant]
  3. ZOVIRAX [Suspect]
     Indication: UVEITIS
     Dosage: 9DF INTRAOCULAR)
     Route: 031
  4. BETAMETHASONE [Suspect]
     Indication: PRODUCT USED FOR UNKNOWN INDICATION
     Dosage: (DF TOPICAL)
     Route: 061

REACTIONS (12)
  - AMBLYOPIA [None]
  - DRUG RESISTANCE [None]
  - NO THERAPEUTIC RESPONSE [None]
  - CORNEAL EROSION [None]
  - HYPERAEMIA [None]
  - EYELID FUNCTION DISORDER [None]
  - SENSATION OF FOREIGN BODY [None]
  - KERATITIS [None]
  - TRANSPLANT FAILURE [None]
  - CORNEAL DEGENERATION [None]
  - SUDDEN VISUAL LOSS [None]
  - KERATOPLASTY [None]
